FAERS Safety Report 5450191-9 (Version None)
Quarter: 2007Q3

REPORT INFORMATION
  Report Type: 
  Country: None (occurrence: None)
  Receive Date: 20070912
  Receipt Date: 20070830
  Transmission Date: 20080115
  Serious: Yes (Hospitalization)
  Sender: FDA-Public Use
  Company Number: US-ELI_LILLY_AND_COMPANY-US200708006953

PATIENT
  Age: 69 Year
  Sex: Male
  Weight: 137.41 kg

DRUGS (10)
  1. LISPRO 25LIS75NPL [Suspect]
     Indication: TYPE 2 DIABETES MELLITUS
     Dosage: 38 IU, DAILY (1/D)
     Dates: start: 20070619
  2. ACTOS [Concomitant]
     Indication: DIABETES MELLITUS
     Dates: start: 20020101
  3. METFORMIN HCL [Concomitant]
     Indication: DIABETES MELLITUS
     Dates: start: 20050101
  4. GLIPIZIDE [Concomitant]
     Indication: DIABETES MELLITUS
     Dates: start: 20050101
  5. ATENOLOL [Concomitant]
     Indication: HYPERTENSION
     Dates: start: 20020101
  6. HYZAAR [Concomitant]
     Indication: HYPERTENSION
     Dates: start: 20020101
  7. VITAMIN B-12 [Concomitant]
     Indication: SUPPLEMENTATION THERAPY
     Dates: start: 20060601
  8. ASPIRIN [Concomitant]
     Indication: PROPHYLAXIS
     Dates: start: 20000101
  9. TYLENOL                                 /SCH/ [Concomitant]
     Indication: ARTHRALGIA
  10. SIMVASTATIN [Concomitant]
     Indication: HYPERCHOLESTEROLAEMIA
     Dates: start: 20020101

REACTIONS (1)
  - SYNCOPE [None]
